FAERS Safety Report 21254393 (Version 4)
Quarter: 2022Q4

REPORT INFORMATION
  Report Type: Spontaneous
  Country: US (occurrence: US)
  Receive Date: 20220825
  Receipt Date: 20221214
  Transmission Date: 20230113
  Serious: Yes (Other)
  Sender: FDA-Public Use
  Company Number: US-NOVARTISPH-NVSC2022US190025

PATIENT
  Sex: Female

DRUGS (1)
  1. MEKINIST [Suspect]
     Active Substance: TRAMETINIB DIMETHYL SULFOXIDE
     Indication: Ovarian cancer
     Dosage: 0.5 MG, QD (DAILY) (BY MOUTH)
     Route: 048
     Dates: start: 20220610

REACTIONS (3)
  - Renal failure [Unknown]
  - Visual impairment [Not Recovered/Not Resolved]
  - Off label use [Unknown]
